FAERS Safety Report 24445440 (Version 1)
Quarter: 2024Q4

REPORT INFORMATION
  Report Type: Spontaneous
  Country: US (occurrence: US)
  Receive Date: 20241016
  Receipt Date: 20241016
  Transmission Date: 20250115
  Serious: Yes (Hospitalization)
  Sender: NOVARTIS
  Company Number: US-002147023-NVSC2024US201782

PATIENT
  Age: 53 Year
  Sex: Male

DRUGS (1)
  1. PROMACTA [Suspect]
     Active Substance: ELTROMBOPAG OLAMINE
     Indication: Aplastic anaemia
     Dosage: 150 MG, QD
     Route: 048
     Dates: start: 202402, end: 202406

REACTIONS (3)
  - Pneumonia fungal [Unknown]
  - Sinusitis fungal [Unknown]
  - Immunosuppression [Unknown]

NARRATIVE: CASE EVENT DATE: 20240814
